FAERS Safety Report 6010849-X (Version None)
Quarter: 2008Q4

REPORT INFORMATION
  Report Type: 
  Country: None (occurrence: None)
  Receive Date: 20081216
  Receipt Date: 20081204
  Transmission Date: 20090506
  Serious: Yes (Hospitalization, Other)
  Sender: FDA-Public Use
  Company Number: 2008AL012238

PATIENT
  Age: 48 Year
  Sex: Female
  Weight: 79.4248 kg

DRUGS (4)
  1. ALPRAZOLAM [Suspect]
     Indication: ANXIETY
     Dosage: 1 MG;TID;PO
     Route: 048
     Dates: start: 19980101
  2. HYDROCODONE BITARTRATE AND ACETAMINOPHEN [Concomitant]
  3. FENTANYL [Concomitant]
  4. OXYCODONE AND ACETAMINOPHEN [Concomitant]

REACTIONS (7)
  - ACCIDENTAL OVERDOSE [None]
  - AGGRESSION [None]
  - CEREBROVASCULAR ACCIDENT [None]
  - CIRCULATORY COLLAPSE [None]
  - FALL [None]
  - HEMIPARESIS [None]
  - MEMORY IMPAIRMENT [None]
